FAERS Safety Report 17985423 (Version 1)
Quarter: 2020Q3

REPORT INFORMATION
  Report Type: Spontaneous
  Country: US (occurrence: US)
  Receive Date: 20200706
  Receipt Date: 20200706
  Transmission Date: 20201103
  Serious: Yes (Other)
  Sender: FDA-Public Use
  Company Number: US-BRISTOL-MYERS SQUIBB COMPANY-BMS-2020-050449

PATIENT
  Age: 37 Year
  Sex: Female
  Weight: 50.34 kg

DRUGS (2)
  1. KENALOG?40 [Suspect]
     Active Substance: TRIAMCINOLONE ACETONIDE
     Indication: ALLERGY TO CHEMICALS
     Dosage: 600 MILLIGRAM, ONE TIME DOSE
     Route: 030
     Dates: start: 20200219, end: 20200219
  2. PREDNISONE. [Concomitant]
     Active Substance: PREDNISONE
     Indication: PRODUCT USED FOR UNKNOWN INDICATION
     Dosage: 2.5 MILLIGRAM, QD
     Route: 065
     Dates: start: 20200417, end: 20200623

REACTIONS (10)
  - Urine output increased [Unknown]
  - Palpitations [Unknown]
  - Decreased appetite [Unknown]
  - Weight decreased [Unknown]
  - Menstruation irregular [Unknown]
  - Adrenal insufficiency [Unknown]
  - Stress [Unknown]
  - Accidental overdose [Unknown]
  - Hypersensitivity [Unknown]
  - Emotional disorder [Unknown]

NARRATIVE: CASE EVENT DATE: 20200219
